FAERS Safety Report 10242136 (Version 1)
Quarter: 2014Q2

REPORT INFORMATION
  Report Type: Spontaneous
  Country: US (occurrence: None)
  Receive Date: 20140616
  Receipt Date: 20140616
  Transmission Date: 20141212
  Serious: Yes (Other)
  Sender: FDA-Public Use
  Company Number: 2014CT000062

PATIENT
  Age: 40 Year
  Sex: Female

DRUGS (1)
  1. KORLYM [Suspect]
     Indication: PITUITARY-DEPENDENT CUSHING^S SYNDROME
     Route: 048
     Dates: start: 201211, end: 201212

REACTIONS (4)
  - Pituitary cancer metastatic [None]
  - Metastases to spine [None]
  - Nausea [None]
  - Headache [None]
